FAERS Safety Report 7250273-5 (Version None)
Quarter: 2011Q1

REPORT INFORMATION
  Report Type: 
  Country: None (occurrence: None)
  Receive Date: 20110118
  Receipt Date: 20110103
  Transmission Date: 20110831
  Serious: Yes (Death)
  Sender: FDA-Public Use
  Company Number: 2011000063

PATIENT
  Age: 62 Year
  Sex: Female

DRUGS (5)
  1. GLIMERID [Concomitant]
  2. INSULIN (INSULIN) [Concomitant]
  3. RABEPRAZOLE SODIUM [Concomitant]
  4. ASPIRIN [Concomitant]
  5. ERLOTINIB (ERLOTINIB) (TABLET) (ERLOTINIB) [Suspect]
     Indication: LUNG NEOPLASM MALIGNANT
     Dosage: (100 MG, QD), ORAL
     Route: 048
     Dates: start: 20100101

REACTIONS (1)
  - DEATH [None]
